FAERS Safety Report 4388357-1 (Version None)
Quarter: 2004Q3

REPORT INFORMATION
  Report Type: 
  Country: None (occurrence: None)
  Receive Date: 20040701
  Receipt Date: 20040621
  Transmission Date: 20050211
  Serious: Yes (Other)
  Sender: FDA-Public Use
  Company Number: US-MERCK-0406USA02047

PATIENT
  Sex: Female

DRUGS (6)
  1. ATENOLOL [Concomitant]
     Route: 065
  2. GLUCOTROL [Concomitant]
     Route: 065
  3. PROCARDIA [Concomitant]
     Route: 065
  4. DITROPAN [Concomitant]
     Route: 065
  5. ZOCOR [Suspect]
     Indication: BLOOD CHOLESTEROL INCREASED
     Route: 048
     Dates: start: 19880101
  6. ZOCOR [Suspect]
     Route: 048

REACTIONS (5)
  - AGEUSIA [None]
  - ANEURYSM [None]
  - ANOSMIA [None]
  - BENIGN BREAST NEOPLASM [None]
  - HYPERTROPHY BREAST [None]
